FAERS Safety Report 12073368 (Version 1)
Quarter: 2016Q1

REPORT INFORMATION
  Report Type: Spontaneous
  Country: US (occurrence: US)
  Receive Date: 20160212
  Receipt Date: 20160212
  Transmission Date: 20160526
  Serious: Yes (Hospitalization)
  Sender: FDA-Public Use
  Company Number: US-BEH-2016058510

PATIENT
  Sex: Female
  Weight: 76 kg

DRUGS (32)
  1. HIZENTRA [Suspect]
     Active Substance: HUMAN IMMUNOGLOBULIN G
     Dosage: 10 G 50 ML VIAL
  2. THERATEARS [Concomitant]
     Active Substance: CARBOXYMETHYLCELLULOSE SODIUM
  3. AQUAPHOR [Concomitant]
     Active Substance: PETROLATUM
  4. LABETALOL [Concomitant]
     Active Substance: LABETALOL\LABETALOL HYDROCHLORIDE
  5. IMODIUM A-D [Concomitant]
     Active Substance: LOPERAMIDE HYDROCHLORIDE
  6. VOLTAREN [Concomitant]
     Active Substance: DICLOFENAC SODIUM
  7. HIZENTRA [Suspect]
     Active Substance: HUMAN IMMUNOGLOBULIN G
     Dosage: 1 G 5 ML VIAL
  8. NEURONTIN [Concomitant]
     Active Substance: GABAPENTIN
  9. MOMETASONE [Concomitant]
     Active Substance: MOMETASONE
  10. PLAQUENIL [Concomitant]
     Active Substance: HYDROXYCHLOROQUINE SULFATE
  11. SYMBICORT [Concomitant]
     Active Substance: BUDESONIDE\FORMOTEROL FUMARATE DIHYDRATE
  12. ZYRTEC [Concomitant]
     Active Substance: CETIRIZINE HYDROCHLORIDE
  13. VALSARTAN AND HYDROCHLOROTHIAZIDE [Concomitant]
     Active Substance: HYDROCHLOROTHIAZIDE\VALSARTAN
  14. SINGULAIR [Concomitant]
     Active Substance: MONTELUKAST SODIUM
  15. NORVASC [Concomitant]
     Active Substance: AMLODIPINE BESYLATE
  16. LIDOCAINE. [Concomitant]
     Active Substance: LIDOCAINE
  17. SERTRALINE [Concomitant]
     Active Substance: SERTRALINE HYDROCHLORIDE
  18. PREDNISONE. [Concomitant]
     Active Substance: PREDNISONE
  19. CHOLESTYRAMINE. [Concomitant]
     Active Substance: CHOLESTYRAMINE
  20. PROBIOTIC [Concomitant]
     Active Substance: PROBIOTICS NOS
  21. HIZENTRA [Suspect]
     Active Substance: HUMAN IMMUNOGLOBULIN G
     Route: 058
  22. ACETAMINOPHEN. [Concomitant]
     Active Substance: ACETAMINOPHEN
  23. LIPITOR [Concomitant]
     Active Substance: ATORVASTATIN CALCIUM
  24. HIZENTRA [Suspect]
     Active Substance: HUMAN IMMUNOGLOBULIN G
     Indication: IMMUNODEFICIENCY COMMON VARIABLE
     Dosage: 4 G 20 ML VIAL
  25. DIPHENHYDRAMINE. [Concomitant]
     Active Substance: DIPHENHYDRAMINE
  26. PROTONIX [Concomitant]
     Active Substance: PANTOPRAZOLE SODIUM
  27. CHILDREN^S ASPIRIN [Concomitant]
     Active Substance: ASPIRIN
  28. NYSTATIN. [Concomitant]
     Active Substance: NYSTATIN
  29. EPIPEN [Concomitant]
     Active Substance: EPINEPHRINE
  30. TOPAMAX [Concomitant]
     Active Substance: TOPIRAMATE
  31. DOXEPIN [Concomitant]
     Active Substance: DOXEPIN
  32. METHOTREXATE [Concomitant]
     Active Substance: METHOTREXATE

REACTIONS (3)
  - Unevaluable event [Unknown]
  - Infusion site bruising [Unknown]
  - Neck surgery [Recovered/Resolved]
